FAERS Safety Report 8959679 (Version 1)
Quarter: 2012Q4

REPORT INFORMATION
  Report Type: 
  Country: US (occurrence: US)
  Receive Date: 20121212
  Receipt Date: 20121212
  Transmission Date: 20130627
  Serious: No
  Sender: FDA-Public Use
  Company Number: US-TEVA-357998USA

PATIENT
  Sex: Female

DRUGS (7)
  1. BUDESONIDE [Suspect]
  2. BROVANA [Suspect]
     Indication: CHRONIC OBSTRUCTIVE PULMONARY DISEASE
     Dosage: 15 ug BID inhalation
     Dates: start: 20120427
  3. PREDNISONE [Concomitant]
  4. IPRATROPIUM [Concomitant]
  5. SALBUTAMOL [Concomitant]
  6. LISINOPRIL [Concomitant]
  7. DIGOXIN [Concomitant]

REACTIONS (2)
  - Therapeutic response decreased [Unknown]
  - Bronchospasm [Not Recovered/Not Resolved]
